FAERS Safety Report 4863880-1 (Version None)
Quarter: 2005Q4

REPORT INFORMATION
  Report Type: 
  Country: None (occurrence: None)
  Receive Date: 20051219
  Receipt Date: 20051219
  Transmission Date: 20060501
  Serious: Yes (Life-Threatening)
  Sender: FDA-Public Use
  Company Number: None

PATIENT
  Sex: Female
  Weight: 71 kg

DRUGS (3)
  1. TRASYLOL [Suspect]
     Indication: CORONARY ARTERY SURGERY
     Dosage: TEST DOSE 1ML   ONCE   IV
     Route: 042
     Dates: start: 20051209
  2. TRASYLOL [Suspect]
     Indication: HAEMORRHAGE
     Dosage: TEST DOSE 1ML   ONCE   IV
     Route: 042
     Dates: start: 20051209
  3. TRASYLOL [Suspect]
     Indication: PROPHYLAXIS
     Dosage: TEST DOSE 1ML   ONCE   IV
     Route: 042
     Dates: start: 20051209

REACTIONS (6)
  - BLOOD PRESSURE SYSTOLIC DECREASED [None]
  - DRUG INEFFECTIVE [None]
  - ERYTHEMA [None]
  - PROCEDURAL COMPLICATION [None]
  - SWOLLEN TONGUE [None]
  - VASODILATION PROCEDURE [None]
